FAERS Safety Report 8766522 (Version 1)
Quarter: 2012Q4

REPORT INFORMATION
  Report Type: 
  Country: US (occurrence: US)
  Receive Date: 20120905
  Receipt Date: 20120905
  Transmission Date: 20130627
  Serious: Yes (Hospitalization)
  Sender: FDA-Public Use
  Company Number: US-ASTRAZENECA-2012SE64665

PATIENT
  Age: 40 Year
  Sex: Female

DRUGS (2)
  1. SEROQUEL [Suspect]
     Route: 048
  2. SEROQUEL [Suspect]
     Route: 048

REACTIONS (6)
  - Staphylococcal infection [Unknown]
  - Insomnia [Unknown]
  - Spinal osteoarthritis [Unknown]
  - Somnolence [Unknown]
  - Intentional drug misuse [Unknown]
  - Drug ineffective [Unknown]
